FAERS Safety Report 22304371 (Version 1)
Quarter: 2023Q2

REPORT INFORMATION
  Report Type: Spontaneous
  Country: US (occurrence: None)
  Receive Date: 20230509
  Receipt Date: 20230509
  Transmission Date: 20230721
  Serious: No
  Sender: FDA-Public Use
  Company Number: None

PATIENT
  Sex: Female
  Weight: 118 kg

DRUGS (9)
  1. LENVIMA [Suspect]
     Active Substance: LENVATINIB
     Indication: Endometrial cancer
     Dosage: FREQUENCY : DAILY;?
     Route: 048
     Dates: start: 20230406
  2. KEYTRUDA [Concomitant]
     Active Substance: PEMBROLIZUMAB
  3. NAPROXEN [Concomitant]
     Active Substance: NAPROXEN
  4. GABAPENTIN [Concomitant]
     Active Substance: GABAPENTIN
  5. ELIQUIS [Concomitant]
     Active Substance: APIXABAN
  6. MORPHINE [Concomitant]
     Active Substance: MORPHINE
  7. LOSARTAN [Concomitant]
     Active Substance: LOSARTAN
  8. HYDROMORPHONE [Concomitant]
     Active Substance: HYDROMORPHONE
  9. MECLIZINE [Concomitant]
     Active Substance: MECLIZINE HYDROCHLORIDE

REACTIONS (1)
  - Fatigue [None]
